FAERS Safety Report 9525087 (Version 3)
Quarter: 2013Q4

REPORT INFORMATION
  Report Type: Report from Study
  Country: US (occurrence: US)
  Receive Date: 20130916
  Receipt Date: 20131024
  Transmission Date: 20140711
  Serious: No
  Sender: FDA-Public Use
  Company Number: US-VERTEX PHARMACEUTICALS INC-2013-009520

PATIENT
  Age: 64 Year
  Sex: Male
  Weight: 70.3 kg

DRUGS (4)
  1. VX-950 (TELAPREVIR) [Suspect]
     Indication: HEPATITIS C
     Dosage: 1125 MG, BID
     Route: 048
     Dates: start: 20130909
  2. PEGASYS [Suspect]
     Indication: HEPATITIS C
     Dosage: 180 ?G, QW
     Route: 058
     Dates: start: 20130909
  3. RIBAVIRIN [Suspect]
     Indication: HEPATITIS C
     Dosage: 600 MG AM, 400 MG PM
     Route: 048
     Dates: start: 20130909
  4. ZOLOFT [Concomitant]
     Indication: DEPRESSION
     Route: 048

REACTIONS (4)
  - Abdominal discomfort [Recovered/Resolved]
  - Fatigue [Recovered/Resolved]
  - Anorectal discomfort [Recovered/Resolved]
  - Rash [Recovered/Resolved]
